FAERS Safety Report 18037728 (Version 2)
Quarter: 2020Q3

REPORT INFORMATION
  Report Type: Spontaneous
  Country: CN (occurrence: CN)
  Receive Date: 20200717
  Receipt Date: 20200731
  Transmission Date: 20201103
  Serious: Yes (Other)
  Sender: FDA-Public Use
  Company Number: CN-ASTRAZENECA-2020SE87592

PATIENT
  Age: 35 Year
  Sex: Female

DRUGS (4)
  1. BETALOC [Suspect]
     Active Substance: METOPROLOL TARTRATE
     Dosage: 20 TABLETS A BOARD
     Route: 048
     Dates: start: 202005
  2. BETALOC [Suspect]
     Active Substance: METOPROLOL TARTRATE
     Dosage: DOMESTIC BETALOC AND USE BETALOC RANDOMLY
     Route: 048
     Dates: start: 20200512, end: 20200701
  3. RHINOCORT [Suspect]
     Active Substance: BUDESONIDE
     Route: 045
  4. BETALOC [Suspect]
     Active Substance: METOPROLOL TARTRATE
     Dosage: RECEIVED HALF A TABLET OF BETALOC
     Route: 048
     Dates: end: 20200701

REACTIONS (22)
  - Abortion spontaneous [Unknown]
  - Road traffic accident [Unknown]
  - Dyspnoea [Unknown]
  - Asthma [Unknown]
  - Nausea [Unknown]
  - Hypoaesthesia [Unknown]
  - Viral myocarditis [Unknown]
  - Arrhythmia [Unknown]
  - Feeding disorder [Unknown]
  - Poor quality sleep [Unknown]
  - Anxiety [Unknown]
  - Grip strength decreased [Unknown]
  - Cardiac discomfort [Unknown]
  - Blood pressure fluctuation [Unknown]
  - Heart rate irregular [Unknown]
  - Peripheral swelling [Unknown]
  - Chest discomfort [Unknown]
  - Visual impairment [Unknown]
  - Chest pain [Unknown]
  - Cold sweat [Unknown]
  - Contusion [Unknown]
  - Stress at work [Unknown]

NARRATIVE: CASE EVENT DATE: 2011
